FAERS Safety Report 5905118-X (Version None)
Quarter: 2008Q4

REPORT INFORMATION
  Report Type: 
  Country: None (occurrence: None)
  Receive Date: 20081001
  Receipt Date: 20080926
  Transmission Date: 20090506
  Serious: Yes (Hospitalization)
  Sender: FDA-Public Use
  Company Number: JP-ASTRAZENECA-2008AP07186

PATIENT
  Age: 54 Year
  Sex: Female
  Weight: 53 kg

DRUGS (12)
  1. ESOMEPRAZOLE MAGNESIUM [Suspect]
     Indication: PROPHYLAXIS AGAINST GASTROINTESTINAL ULCER
     Route: 048
     Dates: start: 20080418
  2. MUCOSTA [Concomitant]
     Indication: GASTROINTESTINAL DISORDER
     Route: 048
     Dates: end: 20080417
  3. NORVASC [Concomitant]
     Indication: HYPERTENSION
     Dosage: UNIT DOSE 5 - 10 MG
     Route: 048
     Dates: end: 20080417
  4. MAGLAX [Concomitant]
     Indication: CONSTIPATION
     Dosage: AS REQUIRED
     Route: 048
     Dates: end: 20080515
  5. LOXONIN [Concomitant]
     Indication: FOOT DEFORMITY
     Route: 048
  6. CYANOCOBALAMIN [Concomitant]
     Indication: INTERVERTEBRAL DISC PROTRUSION
     Route: 048
  7. BLOPRESS [Concomitant]
     Indication: HYPERTENSION
     Route: 048
  8. LIVALO [Concomitant]
     Indication: HYPERLIPIDAEMIA
     Route: 048
  9. PURSENNID [Concomitant]
     Indication: CONSTIPATION
     Route: 048
  10. DEPAKENE [Concomitant]
     Indication: DYSTHYMIC DISORDER
     Route: 048
  11. LORAZEPAM [Concomitant]
     Indication: DYSTHYMIC DISORDER
     Dosage: THREE TIMES A DAY + AS REQUIRED
     Route: 048
  12. HIRNAMIN [Concomitant]
     Indication: INSOMNIA
     Dosage: UNIT DOSE 5 - 15 MG
     Route: 048

REACTIONS (1)
  - CAMPYLOBACTER GASTROENTERITIS [None]
